FAERS Safety Report 23784371 (Version 2)
Quarter: 2024Q2

REPORT INFORMATION
  Report Type: Spontaneous
  Country: US (occurrence: US)
  Receive Date: 20240425
  Receipt Date: 20240426
  Transmission Date: 20240715
  Serious: No
  Sender: FDA-Public Use
  Company Number: US-Kiniksa Pharmaceuticals Ltd.-2023KPU000438

PATIENT
  Age: 43 Year
  Sex: Male

DRUGS (1)
  1. ARCALYST [Suspect]
     Active Substance: RILONACEPT
     Indication: Pericarditis
     Route: 058
     Dates: start: 20230420

REACTIONS (9)
  - Chest pain [Recovered/Resolved]
  - Oropharyngeal pain [Not Recovered/Not Resolved]
  - Dry mouth [Unknown]
  - Heart rate increased [Unknown]
  - Myalgia [Unknown]
  - Nausea [Unknown]
  - Dyspnoea [Unknown]
  - Chest discomfort [Unknown]
  - Feeling hot [Unknown]

NARRATIVE: CASE EVENT DATE: 20230427
